FAERS Safety Report 8799501 (Version 1)
Quarter: 2012Q4

REPORT INFORMATION
  Report Type: Spontaneous
  Country: US (occurrence: None)
  Receive Date: 20120918
  Receipt Date: 20120918
  Transmission Date: 20130627
  Serious: Yes (Other)
  Sender: FDA-Public Use
  Company Number: None

PATIENT
  Age: 55 Year
  Sex: Female
  Weight: 58.97 kg

DRUGS (1)
  1. PHENERGAN [Suspect]
     Indication: POST PROCEDURAL NAUSEA
     Dosage: Intravenous injection Once
     Route: 042
     Dates: start: 20120914, end: 20120914

REACTIONS (9)
  - Feeling hot [None]
  - Coordination abnormal [None]
  - Muscle spasms [None]
  - Apnoea [None]
  - Dry mouth [None]
  - Irritability [None]
  - Sleep disorder [None]
  - Hallucination [None]
  - Gait disturbance [None]
